FAERS Safety Report 12610456 (Version 1)
Quarter: 2016Q3

REPORT INFORMATION
  Report Type: Spontaneous
  Country: US (occurrence: US)
  Receive Date: 20160801
  Receipt Date: 20160801
  Transmission Date: 20161109
  Serious: No
  Sender: FDA-Public Use
  Company Number: US-GUERBET LLC-1055730

PATIENT
  Age: 54 Year
  Sex: Female

DRUGS (4)
  1. MEDROL [Concomitant]
     Active Substance: METHYLPREDNISOLONE
     Dates: start: 20160720
  2. MEDROL [Concomitant]
     Active Substance: METHYLPREDNISOLONE
     Dates: start: 20160721
  3. BENADRYL [Concomitant]
     Active Substance: DIPHENHYDRAMINE HYDROCHLORIDE
     Dates: start: 20160721
  4. OPTIRAY [Suspect]
     Active Substance: IOVERSOL
     Indication: ABDOMINAL PAIN UPPER
     Route: 042
     Dates: start: 20160721, end: 20160721

REACTIONS (4)
  - Asthma [Recovered/Resolved]
  - Pruritus [Recovered/Resolved]
  - Urticaria [Recovered/Resolved]
  - Eye pruritus [Recovered/Resolved]

NARRATIVE: CASE EVENT DATE: 20160721
